FAERS Safety Report 6875652-7 (Version None)
Quarter: 2010Q3

REPORT INFORMATION
  Report Type: 
  Country: None (occurrence: None)
  Receive Date: 20100727
  Receipt Date: 20100719
  Transmission Date: 20110219
  Serious: Yes (Hospitalization)
  Sender: FDA-Public Use
  Company Number: FR-ASTRAZENECA-2010SE33926

PATIENT
  Age: 29180 Day
  Sex: Female

DRUGS (16)
  1. NEXIUM [Suspect]
     Route: 048
     Dates: start: 20100527, end: 20100703
  2. CEFIXIME CHEWABLE [Suspect]
     Route: 048
     Dates: start: 20100626, end: 20100703
  3. ROCEPHIN [Suspect]
     Route: 042
     Dates: start: 20100615, end: 20100625
  4. CRESTOR [Concomitant]
     Route: 048
     Dates: start: 20100525, end: 20100615
  5. AMITRIPTYLINE HCL [Concomitant]
     Dates: start: 20100525, end: 20100703
  6. IMOVANE [Concomitant]
     Dates: start: 20100525, end: 20100703
  7. SERETIDE [Concomitant]
     Dates: start: 20100525
  8. COAPROVEL [Concomitant]
     Dates: start: 20100525, end: 20100622
  9. APROVEL [Concomitant]
     Dates: start: 20100525
  10. ASPEGIC 1000 [Concomitant]
     Dates: start: 20100525
  11. TEGRETOL [Concomitant]
     Dates: start: 20100525, end: 20100621
  12. LASIX [Concomitant]
     Dates: start: 20100525
  13. GENTAMICIN [Concomitant]
     Dates: start: 20100525, end: 20100619
  14. AMLOR [Concomitant]
     Dates: start: 20100525
  15. VALIUM [Concomitant]
     Dates: start: 20100525, end: 20100703
  16. JOSIR LP [Concomitant]
     Dates: start: 20100525, end: 20100703

REACTIONS (2)
  - AGRANULOCYTOSIS [None]
  - PYREXIA [None]
